FAERS Safety Report 8570651-1 (Version None)
Quarter: 2012Q3

REPORT INFORMATION
  Report Type: 
  Country: None (occurrence: None)
  Receive Date: 20120804
  Receipt Date: 20120724
  Transmission Date: 20120928
  Serious: No
  Sender: FDA-Public Use
  Company Number: US-ASTRAZENECA-2012SE52816

PATIENT
  Age: 50 Year
  Sex: Female

DRUGS (1)
  1. CRESTOR [Suspect]
     Route: 048

REACTIONS (5)
  - SWELLING [None]
  - HYPERTENSION [None]
  - HYPERGLYCAEMIA [None]
  - PAIN IN EXTREMITY [None]
  - TENDON PAIN [None]
